FAERS Safety Report 21532658 (Version 1)
Quarter: 2022Q4

REPORT INFORMATION
  Report Type: Spontaneous
  Country: SY (occurrence: SY)
  Receive Date: 20221101
  Receipt Date: 20221101
  Transmission Date: 20230113
  Serious: Yes (Death, Life-Threatening, Hospitalization, Other)
  Sender: FDA-Public Use
  Company Number: SY-SUN PHARMACEUTICAL INDUSTRIES LTD-2022R1-361297

PATIENT
  Age: 30 Year
  Sex: Female

DRUGS (3)
  1. PHENYTOIN [Suspect]
     Active Substance: PHENYTOIN
     Indication: Seizure
     Dosage: UNK
     Route: 065
  2. VALPROIC ACID [Suspect]
     Active Substance: VALPROIC ACID
     Indication: Seizure
     Dosage: UNK
     Route: 065
  3. MAGNESIUM [Suspect]
     Active Substance: MAGNESIUM
     Indication: Seizure
     Dosage: UNK
     Route: 042

REACTIONS (5)
  - COVID-19 [Fatal]
  - Therapy non-responder [Unknown]
  - Vasogenic cerebral oedema [Unknown]
  - Posterior reversible encephalopathy syndrome [Unknown]
  - Therapeutic response decreased [Unknown]
